FAERS Safety Report 8223755-7 (Version None)
Quarter: 2012Q1

REPORT INFORMATION
  Report Type: 
  Country: None (occurrence: None)
  Receive Date: 20120316
  Receipt Date: 20120306
  Transmission Date: 20120608
  Serious: Yes (Hospitalization)
  Sender: FDA-Public Use
  Company Number: 2012SP006167

PATIENT
  Age: 17 Year
  Sex: 0
  Weight: 60 kg

DRUGS (5)
  1. CLOZAPINE [Concomitant]
  2. SULPIRID [Concomitant]
  3. IBUPROFEN [Concomitant]
  4. ASENAPINE (ASENAPINE /05706901/) [Suspect]
     Indication: SCHIZOPHRENIA
     Dosage: 2.5 MG;BIS;SL
     Route: 060
     Dates: start: 20120123, end: 20120125
  5. LORAZEPAM [Concomitant]

REACTIONS (5)
  - CONDITION AGGRAVATED [None]
  - RED BLOOD CELL COUNT INCREASED [None]
  - INSOMNIA [None]
  - AKATHISIA [None]
  - SCHIZOPHRENIA [None]
